FAERS Safety Report 8105195-4 (Version None)
Quarter: 2012Q1

REPORT INFORMATION
  Report Type: 
  Country: None (occurrence: None)
  Receive Date: 20120201
  Receipt Date: 20120127
  Transmission Date: 20120608
  Serious: Yes (Death)
  Sender: FDA-Public Use
  Company Number: JP-CELGENEUS-087-21880-11122609

PATIENT
  Sex: Male

DRUGS (19)
  1. MAGMITT [Concomitant]
     Dosage: 3 TABLET
     Route: 048
     Dates: start: 20111012, end: 20111202
  2. FLIVAS OD [Concomitant]
     Dosage: 1 TABLET
     Route: 048
     Dates: start: 20111012, end: 20111202
  3. ITRACONAZOLE [Concomitant]
     Dosage: 2 TABLET
     Route: 048
     Dates: start: 20111114, end: 20111228
  4. DEXAMETHASONE ACETATE [Suspect]
     Indication: MULTIPLE MYELOMA
     Dosage: 16 MILLIGRAM
     Route: 048
     Dates: start: 20111012, end: 20111101
  5. ELSAMET [Concomitant]
     Dosage: 3 TABLET
     Route: 048
     Dates: start: 20111128, end: 20111202
  6. ALENDRONATE SODIUM [Concomitant]
     Dosage: 35 MILLIGRAM
     Route: 048
     Dates: start: 20111031, end: 20111114
  7. REVLIMID [Suspect]
     Indication: MULTIPLE MYELOMA
     Dosage: 15 MILLIGRAM
     Route: 048
     Dates: start: 20111012, end: 20111101
  8. TOWARAT-CR [Concomitant]
     Dosage: 1 TABLET
     Route: 048
     Dates: start: 20111012, end: 20111202
  9. NSAID'S [Concomitant]
     Route: 065
     Dates: start: 20111112, end: 20110101
  10. EVIPROSTAT [Concomitant]
     Dosage: 3 TABLET
     Route: 048
     Dates: start: 20111012, end: 20111202
  11. ACETAMINOPHEN [Concomitant]
     Dosage: 2 TABLESPOON
     Route: 048
     Dates: start: 20111031, end: 20111114
  12. CANDESARTAN CILEXETIL [Concomitant]
     Dosage: 1 TABLET
     Route: 048
     Dates: start: 20111012, end: 20111202
  13. PLAVIX [Concomitant]
     Dosage: 1 TABLET
     Route: 048
     Dates: start: 20111012, end: 20111202
  14. FLUIDS [Concomitant]
     Route: 065
     Dates: start: 20111112, end: 20110101
  15. OXYGEN [Concomitant]
     Dosage: 2-5L
     Route: 055
     Dates: start: 20111101, end: 20110101
  16. D-ALFA [Concomitant]
     Dosage: 1 CAPSULE
     Route: 048
     Dates: start: 20111104, end: 20111202
  17. CELECOXIB [Concomitant]
     Dosage: 2 TABLET
     Route: 048
     Dates: start: 20111012, end: 20111202
  18. JANUVIA [Concomitant]
     Dosage: 1 TABLET
     Route: 048
     Dates: start: 20111012, end: 20111202
  19. LANSOPRAZOLE [Concomitant]
     Dosage: 1 TABLET
     Route: 048
     Dates: start: 20111012, end: 20111202

REACTIONS (1)
  - INTERSTITIAL LUNG DISEASE [None]
